FAERS Safety Report 8268033-5 (Version None)
Quarter: 2012Q2

REPORT INFORMATION
  Report Type: 
  Country: None (occurrence: None)
  Receive Date: 20120409
  Receipt Date: 20120330
  Transmission Date: 20120825
  Serious: Yes (Hospitalization, Other)
  Sender: FDA-Public Use
  Company Number: US-CELGENEUS-163-21880-11122073

PATIENT
  Sex: Female
  Weight: 99.88 kg

DRUGS (9)
  1. REVLIMID [Suspect]
     Dosage: 25 MILLIGRAM
     Route: 048
     Dates: start: 20120101
  2. GABAPENTIN [Concomitant]
     Route: 065
  3. ASPIRIN [Concomitant]
     Route: 065
     Dates: end: 20111201
  4. HYDROCODONE/ADAP [Concomitant]
     Route: 065
  5. REVLIMID [Suspect]
     Indication: MULTIPLE MYELOMA
     Dosage: 25 MILLIGRAM
     Route: 048
     Dates: start: 20111121, end: 20111231
  6. LEVOTHYROXINE SODIUM [Concomitant]
     Route: 065
  7. FENTANYL CITRATE [Concomitant]
     Route: 062
  8. DEXAMETHASONE [Concomitant]
     Route: 065
  9. CIPROFLOXACIN HCL [Concomitant]
     Route: 065

REACTIONS (5)
  - FATIGUE [None]
  - PULMONARY EMBOLISM [None]
  - PATHOLOGICAL FRACTURE [None]
  - NAUSEA [None]
  - DEEP VEIN THROMBOSIS [None]
